FAERS Safety Report 16275091 (Version 1)
Quarter: 2019Q2

REPORT INFORMATION
  Report Type: Spontaneous
  Country: TW (occurrence: TW)
  Receive Date: 20190506
  Receipt Date: 20190506
  Transmission Date: 20190711
  Serious: Yes (Other)
  Sender: FDA-Public Use
  Company Number: TW-BAYER-2019-088134

PATIENT
  Age: 78 Year
  Sex: Male

DRUGS (1)
  1. CIPROXIN [Suspect]
     Active Substance: CIPROFLOXACIN
     Indication: INFECTION PROPHYLAXIS
     Dosage: UNK, 3 WEEKS EVERY 8 WEEK

REACTIONS (2)
  - Wound infection [None]
  - Post procedural discharge [None]
